FAERS Safety Report 20340220 (Version 1)
Quarter: 2022Q1

REPORT INFORMATION
  Report Type: Spontaneous
  Country: GB (occurrence: None)
  Receive Date: 20220117
  Receipt Date: 20220117
  Transmission Date: 20220424
  Serious: Yes (Death, Other)
  Sender: FDA-Public Use
  Company Number: GB-MICRO LABS LIMITED-ML2022-00123

PATIENT
  Age: 16 Year
  Sex: Female

DRUGS (1)
  1. DICLOFENAC [Suspect]
     Active Substance: DICLOFENAC

REACTIONS (2)
  - Peritonitis [Fatal]
  - Gastric ulcer perforation [Fatal]
